FAERS Safety Report 9863751 (Version 1)
Quarter: 2014Q1

REPORT INFORMATION
  Report Type: Spontaneous
  Country: US (occurrence: US)
  Receive Date: 20140203
  Receipt Date: 20140203
  Transmission Date: 20141002
  Serious: No
  Sender: FDA-Public Use
  Company Number: US-PFIZER INC-2014029435

PATIENT
  Age: 42 Year
  Sex: Female
  Weight: 63.49 kg

DRUGS (1)
  1. LYRICA [Suspect]
     Indication: NERVE INJURY
     Dosage: 150 MG, DAILY
     Dates: start: 2012, end: 201401

REACTIONS (3)
  - Off label use [Unknown]
  - Pain [Unknown]
  - Thinking abnormal [Unknown]
